FAERS Safety Report 8054513-4 (Version None)
Quarter: 2012Q1

REPORT INFORMATION
  Report Type: 
  Country: None (occurrence: None)
  Receive Date: 20120118
  Receipt Date: 20120112
  Transmission Date: 20120608
  Serious: Yes (Other)
  Sender: FDA-Public Use
  Company Number: US-ROCHE-792016

PATIENT
  Sex: Female
  Weight: 62.198 kg

DRUGS (2)
  1. ACCUTANE [Suspect]
     Indication: ACNE CYSTIC
     Route: 065
     Dates: start: 20020301, end: 20020601
  2. ACCUTANE [Suspect]

REACTIONS (5)
  - COLITIS ULCERATIVE [None]
  - UVEITIS [None]
  - INFLAMMATORY BOWEL DISEASE [None]
  - CROHN'S DISEASE [None]
  - EMOTIONAL DISTRESS [None]
